FAERS Safety Report 25186117 (Version 2)
Quarter: 2025Q2

REPORT INFORMATION
  Report Type: Spontaneous
  Country: MX (occurrence: MX)
  Receive Date: 20250410
  Receipt Date: 20250411
  Transmission Date: 20250716
  Serious: Yes (Other)
  Sender: MERCK SHARP AND DOHME
  Company Number: MX-009507513-2274229

PATIENT
  Age: 41 Year
  Sex: Female

DRUGS (1)
  1. PEMBROLIZUMAB [Suspect]
     Active Substance: PEMBROLIZUMAB
     Indication: Breast cancer
     Dates: start: 2023

REACTIONS (3)
  - Febrile neutropenia [Unknown]
  - Gastrointestinal toxicity [Unknown]
  - Rash [Unknown]

NARRATIVE: CASE EVENT DATE: 20230101
